FAERS Safety Report 22220134 (Version 1)
Quarter: 2023Q2

REPORT INFORMATION
  Report Type: Spontaneous
  Country: US (occurrence: None)
  Receive Date: 20230414
  Receipt Date: 20230414
  Transmission Date: 20230721
  Serious: No
  Sender: FDA-Public Use
  Company Number: None

PATIENT
  Sex: Female

DRUGS (2)
  1. TADALAFIL [Suspect]
     Active Substance: TADALAFIL
     Indication: Pulmonary arterial hypertension
     Dosage: 40MG ONCE DAILY BY MOUTH?
     Route: 048
     Dates: start: 202301
  2. TREPROSTINIL [Suspect]
     Active Substance: TREPROSTINIL

REACTIONS (2)
  - Hypotension [None]
  - Therapy change [None]
